FAERS Safety Report 6527168-5 (Version None)
Quarter: 2010Q1

REPORT INFORMATION
  Report Type: 
  Country: None (occurrence: None)
  Receive Date: 20100105
  Receipt Date: 20091224
  Transmission Date: 20100710
  Serious: Yes (Other)
  Sender: FDA-Public Use
  Company Number: B0603539A

PATIENT
  Age: 58 Year
  Sex: Male

DRUGS (4)
  1. PAXIL [Suspect]
     Indication: DEPRESSION
     Dosage: 30MG TWICE PER DAY
     Route: 048
     Dates: start: 20090521
  2. MEILAX [Concomitant]
     Dosage: 2MG PER DAY
     Route: 048
     Dates: start: 20090521
  3. DILTIAZEM HYDROCHLORIDE [Concomitant]
     Dosage: 200MG PER DAY
     Route: 048
  4. ITOROL [Concomitant]
     Dosage: 40MG PER DAY
     Route: 048

REACTIONS (2)
  - AGGRESSION [None]
  - DELUSION [None]
